FAERS Safety Report 5033121-3 (Version None)
Quarter: 2006Q2

REPORT INFORMATION
  Report Type: 
  Country: None (occurrence: None)
  Receive Date: 20060505
  Receipt Date: 20051115
  Transmission Date: 20061013
  Serious: Yes (Hospitalization)
  Sender: FDA-Public Use
  Company Number: PHEH2005US10053

PATIENT
  Age: 76 Year
  Sex: Male
  Weight: 73.5 kg

DRUGS (2)
  1. DIOVAN HCT [Suspect]
     Indication: HYPERTENSION
     Dosage: 80/12.5 MG, UNK
  2. LIPITOR [Concomitant]

REACTIONS (3)
  - DIZZINESS [None]
  - VERTIGO [None]
  - VOMITING [None]
